FAERS Safety Report 25385238 (Version 1)
Quarter: 2025Q2

REPORT INFORMATION
  Report Type: Spontaneous
  Country: US (occurrence: None)
  Receive Date: 20250531
  Receipt Date: 20250531
  Transmission Date: 20250717
  Serious: Yes (Hospitalization)
  Sender: FDA-CTU
  Company Number: None

PATIENT
  Age: 47 Year
  Sex: Female
  Weight: 74.9 kg

DRUGS (7)
  1. CYCLOPHOSPHAMIDE [Suspect]
     Active Substance: CYCLOPHOSPHAMIDE
     Dates: end: 20231209
  2. CYTARABINE [Suspect]
     Active Substance: CYTARABINE
     Dates: end: 20240124
  3. DOXORUBICIN HYDROCHLORIDE [Suspect]
     Active Substance: DOXORUBICIN HYDROCHLORIDE
     Dates: end: 20231209
  4. MESNA [Suspect]
     Active Substance: MESNA
     Dates: end: 20231209
  5. METHOTREXATE [Suspect]
     Active Substance: METHOTREXATE
     Dates: end: 20240123
  6. PONATINIB HYDROCHLORIDE [Suspect]
     Active Substance: PONATINIB HYDROCHLORIDE
     Dates: end: 20240131
  7. VINCRISTINE SULFATE [Suspect]
     Active Substance: VINCRISTINE SULFATE
     Dates: end: 20231209

REACTIONS (3)
  - Febrile neutropenia [None]
  - Tachycardia [None]
  - Diarrhoea [None]

NARRATIVE: CASE EVENT DATE: 20240201
